FAERS Safety Report 5491486-2 (Version None)
Quarter: 2007Q4

REPORT INFORMATION
  Report Type: 
  Country: None (occurrence: None)
  Receive Date: 20071022
  Receipt Date: 20071012
  Transmission Date: 20080405
  Serious: Yes (Hospitalization)
  Sender: FDA-Public Use
  Company Number: PHBS2006JP19871

PATIENT
  Age: 70 Year
  Sex: Female

DRUGS (5)
  1. ZOMETA [Suspect]
     Indication: METASTASES TO BONE
     Dosage: 4 MG, UNK
     Route: 042
  2. AREDIA [Suspect]
     Indication: METASTASES TO BONE
     Dosage: 90 MG EVERY 4 WEEKS
     Dates: start: 20050624
  3. HERCEPTIN [Concomitant]
     Dosage: 170 MG/BODY ONCE
  4. HERCEPTIN [Concomitant]
     Dosage: 85 MG/BODY ONCE A WEEK
  5. DOCETAXEL [Concomitant]
     Dosage: 100 MG/BODY EVERY 3 WEEKS

REACTIONS (6)
  - ACTINOMYCOSIS [None]
  - BONE DISORDER [None]
  - NEUTROPHIL COUNT INCREASED [None]
  - OSTEONECROSIS [None]
  - PAIN IN JAW [None]
  - PERIODONTITIS [None]
